FAERS Safety Report 10184730 (Version 1)
Quarter: 2014Q2

REPORT INFORMATION
  Report Type: Spontaneous
  Country: CA (occurrence: CA)
  Receive Date: 20140521
  Receipt Date: 20140521
  Transmission Date: 20141212
  Serious: Yes (Hospitalization, Other)
  Sender: FDA-Public Use
  Company Number: CA-ROCHE-1404978

PATIENT
  Age: 20 Year
  Sex: Female

DRUGS (1)
  1. RIVOTRIL [Suspect]
     Indication: PRODUCT USED FOR UNKNOWN INDICATION
     Dosage: 30 TABLETS AT ONCE
     Route: 048

REACTIONS (5)
  - Loss of consciousness [Unknown]
  - Overdose [Unknown]
  - Dizziness [Unknown]
  - Insomnia [Unknown]
  - Blood glucose abnormal [Unknown]
